FAERS Safety Report 7283491-0 (Version None)
Quarter: 2011Q1

REPORT INFORMATION
  Report Type: 
  Country: None (occurrence: None)
  Receive Date: 20110209
  Receipt Date: 20110131
  Transmission Date: 20110831
  Serious: Yes (Hospitalization, Other)
  Sender: FDA-Public Use
  Company Number: PHHO2011JP02399

PATIENT
  Sex: Male
  Weight: 60 kg

DRUGS (19)
  1. BLINDED ALISKIREN [Suspect]
     Indication: CARDIAC FAILURE
     Dosage: NO TREATMENT
  2. EPLERENONE [Concomitant]
     Indication: CARDIAC FAILURE
     Dosage: UNK
     Dates: start: 20100617
  3. ARTIST [Concomitant]
     Indication: CARDIAC FAILURE
     Dosage: UNK
     Dates: start: 20100210
  4. ENALAPRIL MALEATE [Suspect]
     Indication: CARDIAC FAILURE
     Dosage: NO TREATMENT
  5. COMPARATOR ENALAPRIL [Suspect]
     Dosage: 10 MG, QD
     Route: 048
     Dates: start: 20110107
  6. SENNOSIDE [Concomitant]
     Indication: CONSTIPATION
     Dosage: UNK
     Dates: start: 20080529
  7. AZOPT [Concomitant]
     Indication: GLAUCOMA
     Dosage: UNK
     Dates: start: 20100202
  8. ANCARON [Concomitant]
     Indication: VENTRICULAR FIBRILLATION
     Dosage: UNK
     Dates: start: 20100205
  9. BLINDED NO TREATMENT RECEIVED [Suspect]
     Indication: CARDIAC FAILURE
     Dosage: NO TREATMENT
  10. COMPARATOR ENALAPRIL [Suspect]
     Indication: CARDIAC FAILURE
     Dosage: 10 MG, QD
     Route: 048
     Dates: start: 20101112, end: 20101209
  11. COMPARATOR ENALAPRIL [Suspect]
     Dosage: 20 MG, QD
     Route: 048
     Dates: start: 20101210, end: 20110106
  12. ALISKIREN [Suspect]
     Indication: CARDIAC FAILURE
     Dosage: 150 MG, QD
     Route: 048
     Dates: start: 20110107
  13. THYRADIN [Concomitant]
     Indication: HYPOTHYROIDISM
     Dosage: UNK
     Dates: start: 20100506
  14. TAKEPRON [Concomitant]
     Dosage: UNK
     Dates: start: 20080205
  15. SOLANAX [Concomitant]
     Indication: GLAUCOMA
     Dosage: UNK
     Dates: start: 20091119
  16. WARFARIN [Concomitant]
     Indication: CEREBRAL ARTERY EMBOLISM
     Dosage: UNK
     Dates: start: 20100128
  17. CEPHADOL [Concomitant]
     Indication: DIZZINESS
     Dosage: UNK
     Dates: start: 20090409
  18. TRAVATAN Z [Concomitant]
     Indication: GLAUCOMA
     Dosage: UNK
     Dates: start: 20100513
  19. LASIX [Concomitant]
     Indication: CARDIAC FAILURE
     Dosage: UNK
     Dates: start: 20100501

REACTIONS (9)
  - HEADACHE [None]
  - DECREASED APPETITE [None]
  - URINARY TRACT INFECTION [None]
  - PYELONEPHRITIS ACUTE [None]
  - DYSURIA [None]
  - ARTHRALGIA [None]
  - CHILLS [None]
  - ASTHENIA [None]
  - ABDOMINAL PAIN [None]
